FAERS Safety Report 6264032-3 (Version None)
Quarter: 2009Q3

REPORT INFORMATION
  Report Type: 
  Country: None (occurrence: None)
  Receive Date: 20090710
  Receipt Date: 20090702
  Transmission Date: 20100115
  Serious: Yes (Death, Hospitalization)
  Sender: FDA-Public Use
  Company Number: GB-AMGEN-UK352722

PATIENT
  Sex: Female

DRUGS (2)
  1. PANITUMUMAB [Suspect]
     Indication: COLORECTAL CANCER
     Route: 042
     Dates: start: 20090414
  2. IRINOTECAN HCL [Suspect]
     Route: 042
     Dates: start: 20090414

REACTIONS (2)
  - DIARRHOEA [None]
  - VOMITING [None]
